FAERS Safety Report 8211494-8 (Version None)
Quarter: 2012Q1

REPORT INFORMATION
  Report Type: 
  Country: None (occurrence: None)
  Receive Date: 20120315
  Receipt Date: 20120312
  Transmission Date: 20120608
  Serious: Yes (Congenital Anomaly, Other)
  Sender: FDA-Public Use
  Company Number: US-PFIZER INC-2012034294

PATIENT
  Sex: Male
  Weight: 3.1 kg

DRUGS (5)
  1. ZOLOFT [Suspect]
     Indication: DEPRESSION
  2. ZOLOFT [Suspect]
     Indication: AFFECTIVE DISORDER
  3. THYROID TAB [Concomitant]
     Dosage: 30 UG, 1X/DAY
     Route: 064
  4. ZOLOFT [Suspect]
     Indication: ANXIETY
     Dosage: 25 MG, UNK
     Route: 064
  5. MULTI-VITAMINS [Concomitant]
     Dosage: UNK
     Route: 064

REACTIONS (2)
  - MATERNAL EXPOSURE TIMING UNSPECIFIED [None]
  - EXOMPHALOS [None]
